FAERS Safety Report 12046274 (Version 2)
Quarter: 2016Q1

REPORT INFORMATION
  Report Type: Spontaneous
  Country: US (occurrence: US)
  Receive Date: 20160209
  Receipt Date: 20160318
  Transmission Date: 20160526
  Serious: Yes (Other)
  Sender: FDA-Public Use
  Company Number: US-ROCHE-1706740

PATIENT
  Sex: Female

DRUGS (1)
  1. XOLAIR [Suspect]
     Active Substance: OMALIZUMAB
     Indication: ASTHMA
     Dosage: ON AND OFF 3 YEARS
     Route: 065

REACTIONS (4)
  - Infection parasitic [Unknown]
  - Product quality issue [Unknown]
  - Bipolar disorder [Not Recovered/Not Resolved]
  - Suspected transmission of an infectious agent via product [Unknown]
